FAERS Safety Report 8050686-8 (Version None)
Quarter: 2012Q1

REPORT INFORMATION
  Report Type: 
  Country: None (occurrence: None)
  Receive Date: 20120117
  Receipt Date: 20120117
  Transmission Date: 20120608
  Serious: Yes (Hospitalization, Other)
  Sender: FDA-Public Use
  Company Number: None

PATIENT
  Sex: Female
  Weight: 49.895 kg

DRUGS (6)
  1. CLINDAMYCIN [Concomitant]
     Route: 048
  2. VICODIN [Concomitant]
  3. CYMBALTA [Suspect]
     Indication: FIBROMYALGIA
     Dosage: 20 MG
     Route: 048
     Dates: start: 20111014, end: 20120114
  4. CLINDAMYCIN [Concomitant]
     Route: 042
  5. HYDROCODONE BITARTRATE + ACETAMINOPHEN [Concomitant]
     Route: 048
  6. TORADOL [Concomitant]
     Route: 042

REACTIONS (9)
  - POLYURIA [None]
  - PAIN [None]
  - URGE INCONTINENCE [None]
  - CHILLS [None]
  - SWELLING FACE [None]
  - FAECAL INCONTINENCE [None]
  - DYSPNOEA [None]
  - NIGHT SWEATS [None]
  - VOMITING [None]
